FAERS Safety Report 9776157 (Version 1)
Quarter: 2013Q4

REPORT INFORMATION
  Report Type: Report from Study
  Country: US (occurrence: US)
  Receive Date: 20131220
  Receipt Date: 20131220
  Transmission Date: 20140711
  Serious: Yes (Death)
  Sender: FDA-Public Use
  Company Number: US-ASTRAZENECA-2013SE92104

PATIENT
  Age: 76 Year
  Sex: Female
  Weight: 111.6 kg

DRUGS (10)
  1. NEXIUM [Suspect]
     Indication: GASTROOESOPHAGEAL REFLUX DISEASE
     Route: 048
     Dates: start: 201207
  2. MERREM [Suspect]
     Dosage: Q6H
     Route: 042
     Dates: start: 20130812
  3. VIT D C B12 [Concomitant]
  4. PREDNISONE [Concomitant]
  5. PRAVASTATIN [Concomitant]
     Indication: BLOOD CHOLESTEROL INCREASED
  6. NOVALOG [Concomitant]
     Indication: DIABETES MELLITUS
  7. NEURONTIN [Concomitant]
     Indication: NEUROPATHY PERIPHERAL
  8. MULPAQ [Concomitant]
  9. MIRARLAX [Concomitant]
     Indication: LAXATIVE SUPPORTIVE CARE
  10. LOSARTAN [Concomitant]
     Indication: BLOOD PRESSURE ABNORMAL

REACTIONS (1)
  - Death [Fatal]
